FAERS Safety Report 19912930 (Version 2)
Quarter: 2021Q4

REPORT INFORMATION
  Report Type: Spontaneous
  Country: US (occurrence: US)
  Receive Date: 20211004
  Receipt Date: 20211019
  Transmission Date: 20220304
  Serious: No
  Sender: FDA-Public Use
  Company Number: US-LUPIN PHARMACEUTICALS INC.-2021-18379

PATIENT
  Sex: Male

DRUGS (1)
  1. GAVILYTE G [Suspect]
     Active Substance: POLYETHYLENE GLYCOL 3350\POTASSIUM CHLORIDE\SODIUM BICARBONATE\SODIUM CHLORIDE\SODIUM SULFATE
     Indication: Bowel preparation
     Dosage: UNK
     Route: 048
     Dates: start: 20210919

REACTIONS (3)
  - Abdominal pain [Unknown]
  - Vomiting [Unknown]
  - Pollakiuria [Unknown]

NARRATIVE: CASE EVENT DATE: 20210919
